FAERS Safety Report 23343604 (Version 2)
Quarter: 2024Q1

REPORT INFORMATION
  Report Type: Spontaneous
  Country: US (occurrence: US)
  Receive Date: 20231227
  Receipt Date: 20240201
  Transmission Date: 20240409
  Serious: Yes (Other)
  Sender: FDA-Public Use
  Company Number: US-PFIZER INC-202300446686

PATIENT
  Age: 79 Year
  Sex: Female

DRUGS (5)
  1. PAXLOVID [Suspect]
     Active Substance: NIRMATRELVIR\RITONAVIR
     Indication: COVID-19 treatment
     Dosage: UNK
     Dates: start: 20231213, end: 20231218
  2. CORICIDIN HBP COUGH AND COLD [Concomitant]
     Active Substance: CHLORPHENIRAMINE MALEATE\DEXTROMETHORPHAN HYDROBROMIDE
     Indication: Cough
     Dosage: UNK
     Route: 048
     Dates: start: 20231212, end: 20231214
  3. CORICIDIN HBP COUGH AND COLD [Concomitant]
     Active Substance: CHLORPHENIRAMINE MALEATE\DEXTROMETHORPHAN HYDROBROMIDE
     Indication: Nasal congestion
  4. TYLENOL [Concomitant]
     Active Substance: ACETAMINOPHEN
     Indication: Pain
     Dosage: UNK
     Route: 048
     Dates: start: 20231216, end: 20231221
  5. OLMESARTAN MEDOXOMIL [Concomitant]
     Active Substance: OLMESARTAN MEDOXOMIL
     Indication: Hypertension
     Dosage: 5 MG, 1X/DAY
     Route: 048

REACTIONS (7)
  - Syncope [Recovered/Resolved]
  - Diarrhoea [Recovered/Resolved]
  - Ageusia [Recovered/Resolved]
  - Anosmia [Recovered/Resolved]
  - Platelet count increased [Unknown]
  - Blood sodium decreased [Unknown]
  - Blood chloride decreased [Unknown]

NARRATIVE: CASE EVENT DATE: 20231213
